FAERS Safety Report 5797460-0 (Version None)
Quarter: 2008Q2

REPORT INFORMATION
  Report Type: 
  Country: None (occurrence: None)
  Receive Date: 20080630
  Receipt Date: 20080620
  Transmission Date: 20081010
  Serious: Yes (Hospitalization)
  Sender: FDA-Public Use
  Company Number: SPV1-2008-01230

PATIENT
  Age: 63 Year
  Sex: Male

DRUGS (5)
  1. LIALDA [Suspect]
     Indication: COLITIS ULCERATIVE
     Dosage: 2.4 G, ORAL; 3.6 G DAILY, ORAL
     Route: 048
     Dates: start: 20070928, end: 20070101
  2. LIALDA [Suspect]
     Indication: COLITIS ULCERATIVE
     Dosage: 2.4 G, ORAL; 3.6 G DAILY, ORAL
     Route: 048
     Dates: start: 20070101, end: 20071017
  3. COUMADIN /00014802/ (WARFARIN SODIUM) UNKNOWN [Concomitant]
  4. LISINOPRIL [Concomitant]
  5. LIPITOR [Concomitant]

REACTIONS (3)
  - ADVERSE DRUG REACTION [None]
  - DYSPNOEA [None]
  - PYREXIA [None]
